FAERS Safety Report 4295902-3 (Version None)
Quarter: 2004Q1

REPORT INFORMATION
  Report Type: 
  Country: None (occurrence: None)
  Receive Date: 20040212
  Receipt Date: 20040203
  Transmission Date: 20041129
  Serious: Yes (Disabling)
  Sender: FDA-Public Use
  Company Number: JP-JNJFOC-20040200453

PATIENT
  Age: 62 Year
  Sex: Female

DRUGS (1)
  1. OFLOXACIN [Suspect]
     Dosage: 400 MG,ORAL
     Route: 048
     Dates: start: 20030101, end: 20030101

REACTIONS (1)
  - PLANTAR FASCIITIS [None]
